FAERS Safety Report 11652849 (Version 2)
Quarter: 2016Q1

REPORT INFORMATION
  Report Type: Spontaneous
  Country: JP (occurrence: JP)
  Receive Date: 20151022
  Receipt Date: 20160122
  Transmission Date: 20160525
  Serious: No
  Sender: FDA-Public Use
  Company Number: JP-JNJFOC-20151016290

PATIENT
  Age: 53 Year
  Sex: Female
  Weight: 57 kg

DRUGS (9)
  1. DOXIL [Suspect]
     Active Substance: DOXORUBICIN HYDROCHLORIDE
     Indication: OVARIAN CANCER
     Route: 042
     Dates: start: 20151001
  2. MAGMITT [Concomitant]
     Active Substance: MAGNESIUM OXIDE
     Route: 048
     Dates: start: 20141009
  3. DECADRON [Concomitant]
     Active Substance: DEXAMETHASONE
     Dosage: ON THE DATE OF CHEMOTHERAPY
     Route: 065
     Dates: start: 20150806
  4. DOXIL [Suspect]
     Active Substance: DOXORUBICIN HYDROCHLORIDE
     Indication: OVARIAN CANCER
     Route: 042
     Dates: start: 20150806
  5. ALOXI [Concomitant]
     Active Substance: PALONOSETRON HYDROCHLORIDE
     Dosage: ON THE DATE OF CHEMOTHERAPY
     Route: 042
     Dates: start: 20150305
  6. WARFARIN [Concomitant]
     Active Substance: WARFARIN
     Route: 048
  7. DIPHENHYDRAMINE HYDROCHLORIDE. [Concomitant]
     Active Substance: DIPHENHYDRAMINE HYDROCHLORIDE
     Dosage: ON THE DATE OF CHEMOTHERAPY
     Route: 048
     Dates: start: 20110712
  8. DOXIL [Suspect]
     Active Substance: DOXORUBICIN HYDROCHLORIDE
     Indication: OVARIAN CANCER
     Route: 042
     Dates: start: 20151203
  9. RIZABEN [Concomitant]
     Active Substance: TRANILAST
     Route: 048
     Dates: start: 20151020

REACTIONS (1)
  - Drug eruption [Recovering/Resolving]

NARRATIVE: CASE EVENT DATE: 20151013
